FAERS Safety Report 7423286-8 (Version None)
Quarter: 2011Q2

REPORT INFORMATION
  Report Type: 
  Country: None (occurrence: None)
  Receive Date: 20110419
  Receipt Date: 20101109
  Transmission Date: 20111010
  Serious: Yes (Other)
  Sender: FDA-Public Use
  Company Number: US-BAYER-201029021NA

PATIENT
  Sex: Female
  Weight: 136 kg

DRUGS (8)
  1. YASMIN [Suspect]
     Indication: CONTRACEPTION
     Dosage: UNK UNK, UNK
     Route: 048
     Dates: start: 20060301, end: 20060401
  2. PHENTERMINE [Concomitant]
  3. ASPIRIN [Concomitant]
     Indication: PRODUCT USED FOR UNKNOWN INDICATION
     Dosage: UNK
     Dates: start: 20060901
  4. COUMADIN [Concomitant]
  5. PROVERA [Concomitant]
     Indication: PRODUCT USED FOR UNKNOWN INDICATION
     Dosage: DAILY DOSE 10 MG
  6. GLUCOPHAGE [Concomitant]
     Dosage: UNK
     Dates: start: 20050101, end: 20090101
  7. MEDROXYPROGESTERONE [Concomitant]
  8. SPIRONOLACTONE [Concomitant]
     Indication: PRODUCT USED FOR UNKNOWN INDICATION
     Dosage: 25 MG, BID

REACTIONS (1)
  - DEEP VEIN THROMBOSIS [None]
